FAERS Safety Report 6603858-0 (Version None)
Quarter: 2010Q1

REPORT INFORMATION
  Report Type: 
  Country: None (occurrence: None)
  Receive Date: 20100226
  Receipt Date: 20090224
  Transmission Date: 20100710
  Serious: No
  Sender: FDA-Public Use
  Company Number: A0770218A

PATIENT
  Age: 14 Year
  Sex: Male

DRUGS (3)
  1. LAMICTAL CD [Suspect]
     Indication: BIPOLAR DISORDER
     Dosage: 137.5MG PER DAY
     Route: 048
  2. SEROQUEL [Concomitant]
  3. CATAPRES [Concomitant]

REACTIONS (6)
  - ANTICONVULSANT DRUG LEVEL DECREASED [None]
  - APHASIA [None]
  - DEPRESSED MOOD [None]
  - DRUG INEFFECTIVE [None]
  - GROWTH RETARDATION [None]
  - MALAISE [None]
